FAERS Safety Report 8576455-8 (Version None)
Quarter: 2012Q3

REPORT INFORMATION
  Report Type: 
  Country: None (occurrence: None)
  Receive Date: 20120807
  Receipt Date: 20120717
  Transmission Date: 20120928
  Serious: No
  Sender: FDA-Public Use
  Company Number: US-BAYER-2012-072145

PATIENT
  Age: 72 Year
  Sex: Female
  Weight: 82 kg

DRUGS (4)
  1. ALEVE (CAPLET) [Suspect]
     Dosage: 2 DF, QD
     Route: 048
  2. CRESTOR [Concomitant]
  3. NIACIN [Concomitant]
  4. ALEVE (CAPLET) [Suspect]
     Dosage: 4 DF, UNK
     Route: 048
     Dates: start: 20120717, end: 20120717

REACTIONS (1)
  - NO ADVERSE EVENT [None]
